FAERS Safety Report 9904302 (Version 2)
Quarter: 2014Q1

REPORT INFORMATION
  Report Type: Spontaneous
  Country: IT (occurrence: IT)
  Receive Date: 20140218
  Receipt Date: 20140224
  Transmission Date: 20141002
  Serious: Yes (Other)
  Sender: FDA-Public Use
  Company Number: IT-ACCORD-021918

PATIENT
  Age: 76 Year
  Sex: Male

DRUGS (3)
  1. FLUOROURACIL [Suspect]
     Indication: COLON CANCER METASTATIC
     Route: 042
     Dates: start: 20130514, end: 20140102
  2. IRINOTECAN [Suspect]
     Indication: COLON CANCER METASTATIC
     Route: 042
     Dates: start: 20130514, end: 20140102
  3. LEDERFOLIN [Concomitant]

REACTIONS (1)
  - Hypercreatinaemia [Unknown]
